FAERS Safety Report 15716361 (Version 1)
Quarter: 2018Q4

REPORT INFORMATION
  Report Type: Spontaneous
  Country: CA (occurrence: CA)
  Receive Date: 20181213
  Receipt Date: 20181213
  Transmission Date: 20190205
  Serious: Yes (Death, Hospitalization)
  Sender: FDA-Public Use
  Company Number: CA-TEVA-2018-CA-986390

PATIENT
  Age: 31 Year
  Sex: Male

DRUGS (1)
  1. PREDNISONE. [Suspect]
     Active Substance: PREDNISONE
     Indication: ARTHRITIS
     Dosage: 50 MILLIGRAM DAILY; A TAPERING REGIMEN OF PREDNISONE WAS PRESCRIBED, STARTING AT 50 MG/DAY
     Route: 065

REACTIONS (6)
  - Blastomycosis [Fatal]
  - Arthritis fungal [Unknown]
  - Multiple organ dysfunction syndrome [Unknown]
  - Blastomycosis [Unknown]
  - Respiratory failure [Unknown]
  - Arthritis bacterial [Unknown]
